FAERS Safety Report 8918080 (Version 1)
Quarter: 2012Q4

REPORT INFORMATION
  Report Type: 
  Country: US (occurrence: US)
  Receive Date: 20121120
  Receipt Date: 20121120
  Transmission Date: 20130627
  Serious: No
  Sender: FDA-Public Use
  Company Number: US-009507513-1211USA004779

PATIENT
  Age: 82 None
  Sex: Female

DRUGS (4)
  1. COSOPT [Suspect]
     Indication: GLAUCOMA
     Dosage: 2 DF, in right eye in the evening
     Route: 047
     Dates: start: 201209, end: 20121103
  2. COSOPT [Suspect]
     Dosage: UNK
     Dates: start: 2010
  3. ZIOPTAN [Concomitant]
     Dosage: 2 DF, qd
     Route: 047
  4. WELCHOL [Concomitant]

REACTIONS (9)
  - Dyspnoea [Recovering/Resolving]
  - Dizziness [Recovering/Resolving]
  - Muscular weakness [Recovering/Resolving]
  - Vision blurred [Recovering/Resolving]
  - Dyspnoea [Recovering/Resolving]
  - Dizziness [Unknown]
  - Dyspnoea [Unknown]
  - Muscular weakness [Unknown]
  - Vision blurred [Unknown]
